FAERS Safety Report 8432551-7 (Version None)
Quarter: 2012Q2

REPORT INFORMATION
  Report Type: 
  Country: None (occurrence: None)
  Receive Date: 20120607
  Receipt Date: 20120601
  Transmission Date: 20120825
  Serious: Yes (Other)
  Sender: FDA-Public Use
  Company Number: CL-421-2012

PATIENT
  Age: 72 Year
  Sex: Male

DRUGS (1)
  1. AMIODARONE HCL [Suspect]
     Indication: ARRHYTHMIA SUPRAVENTRICULAR

REACTIONS (7)
  - CONDITION AGGRAVATED [None]
  - VENTRICULAR TACHYCARDIA [None]
  - HYPERTHYROIDISM [None]
  - TREATMENT FAILURE [None]
  - SURGERY [None]
  - ATRIAL FIBRILLATION [None]
  - CACHEXIA [None]
